FAERS Safety Report 21133817 (Version 1)
Quarter: 2022Q3

REPORT INFORMATION
  Report Type: 
  Country: None (occurrence: None)
  Receive Date: 20220726
  Receipt Date: 20220726
  Transmission Date: 20221027
  Serious: Yes (Other)
  Sender: FDA-Public Use
  Company Number: None

PATIENT
  Sex: Female

DRUGS (1)
  1. FENTANYL CITRATE [Suspect]
     Active Substance: FENTANYL CITRATE

REACTIONS (6)
  - Fear of death [Recovered/Resolved]
  - Loss of consciousness [Recovered/Resolved]
  - Pallor [Unknown]
  - Rash [Unknown]
  - Hypoaesthesia [Unknown]
  - Accidental exposure to product [Recovered/Resolved]
